FAERS Safety Report 6935704-X (Version None)
Quarter: 2010Q3

REPORT INFORMATION
  Report Type: 
  Country: None (occurrence: None)
  Receive Date: 20100823
  Receipt Date: 20100809
  Transmission Date: 20110219
  Serious: Yes (Hospitalization)
  Sender: FDA-Public Use
  Company Number: PHHY2010US45338

PATIENT
  Sex: Male

DRUGS (2)
  1. EXJADE [Suspect]
     Indication: APLASTIC ANAEMIA
     Dosage: 625 MG, QD
     Route: 048
  2. EXJADE [Suspect]
     Indication: APLASIA PURE RED CELL

REACTIONS (1)
  - DIABETES MELLITUS [None]
